FAERS Safety Report 23070484 (Version 1)
Quarter: 2023Q4

REPORT INFORMATION
  Report Type: Spontaneous
  Country: US (occurrence: US)
  Receive Date: 20231016
  Receipt Date: 20231016
  Transmission Date: 20240110
  Serious: No
  Sender: FDA-Public Use
  Company Number: US-ELI_LILLY_AND_COMPANY-US202310005643

PATIENT
  Age: 61 Year
  Sex: Female

DRUGS (3)
  1. EMGALITY [Suspect]
     Active Substance: GALCANEZUMAB-GNLM
     Indication: Migraine
     Dosage: UNK UNK, SINGLE (LOADING DOSE)
     Route: 065
     Dates: start: 20231009, end: 20231009
  2. NURTEC ODT [Concomitant]
     Active Substance: RIMEGEPANT SULFATE
     Indication: Product used for unknown indication
     Dosage: UNK UNK, UNKNOWN
  3. TOPAMAX [Concomitant]
     Active Substance: TOPIRAMATE
     Indication: Product used for unknown indication
     Dosage: 100 MG, OTHER (AT BEDTIME)

REACTIONS (2)
  - Dizziness [Unknown]
  - Head discomfort [Unknown]

NARRATIVE: CASE EVENT DATE: 20231009
